FAERS Safety Report 21050298 (Version 1)
Quarter: 2022Q3

REPORT INFORMATION
  Report Type: Spontaneous
  Country: US (occurrence: None)
  Receive Date: 20220707
  Receipt Date: 20220707
  Transmission Date: 20221026
  Serious: Yes (Other)
  Sender: FDA-Public Use
  Company Number: 2022A240065

PATIENT
  Sex: Female
  Weight: 83.9 kg

DRUGS (1)
  1. TAGRISSO [Suspect]
     Active Substance: OSIMERTINIB
     Indication: Lung neoplasm malignant
     Route: 048
     Dates: start: 2019

REACTIONS (2)
  - Lung carcinoma cell type unspecified recurrent [Unknown]
  - Tongue discolouration [Unknown]
